FAERS Safety Report 7797702-6 (Version None)
Quarter: 2011Q4

REPORT INFORMATION
  Report Type: 
  Country: None (occurrence: None)
  Receive Date: 20111005
  Receipt Date: 20110926
  Transmission Date: 20120403
  Serious: Yes (Hospitalization, Other)
  Sender: FDA-Public Use
  Company Number: PHHY2011ES84768

PATIENT
  Age: 88 Year
  Sex: Female

DRUGS (8)
  1. EXFORGE HCT [Interacting]
     Indication: HYPERTENSION
     Dosage: 1 DF, A DAY
     Dates: start: 20110401, end: 20110707
  2. MADOPAR [Concomitant]
     Indication: PARKINSON'S DISEASE
     Dosage: 500 MG, TID
     Route: 048
     Dates: start: 20101201
  3. ATORVASTATIN [Concomitant]
     Dosage: 40 MG, QD
     Route: 048
     Dates: start: 20070101
  4. ENALAPRIL MALEATE [Concomitant]
     Indication: HYPERTENSION
     Dosage: 20 MG, QD
     Route: 048
     Dates: start: 20110622
  5. AMOXICILLIN AND CLAVULANATE POTASSIUM [Concomitant]
     Indication: SOFT TISSUE INFECTION
     Dosage: 2 G, TID
     Route: 042
     Dates: start: 20110122
  6. METFORMIN HYDROCHLORIDE [Suspect]
     Indication: TYPE 2 DIABETES MELLITUS
     Dosage: UNK
     Dates: start: 20100601
  7. SERTRALINE HYDROCHLORIDE [Interacting]
     Indication: DEPRESSION
     Dosage: 50 MG, QD
     Route: 048
     Dates: start: 20101001, end: 20110707
  8. ASPIRIN [Concomitant]
     Dosage: 100 MG, QD
     Route: 048
     Dates: start: 20030101

REACTIONS (7)
  - VOMITING [None]
  - INAPPROPRIATE ANTIDIURETIC HORMONE SECRETION [None]
  - EXTREMITY NECROSIS [None]
  - BLOOD SODIUM INCREASED [None]
  - ALTERED STATE OF CONSCIOUSNESS [None]
  - NAUSEA [None]
  - DRUG INTERACTION [None]
